FAERS Safety Report 4641130-9 (Version None)
Quarter: 2005Q2

REPORT INFORMATION
  Report Type: 
  Country: None (occurrence: None)
  Receive Date: 20050419
  Receipt Date: 20050419
  Transmission Date: 20051028
  Serious: Yes (Hospitalization, Disabling, Congenital Anomaly)
  Sender: FDA-Public Use
  Company Number: None

PATIENT
  Sex: Female
  Weight: 3.4 kg

DRUGS (3)
  1. COMBIVIR [Suspect]
     Indication: CONVULSION NEONATAL
     Dosage: 1 BID ORAL
     Route: 048
  2. KALETRA [Suspect]
     Indication: CEREBRAL INFARCTION
     Dosage: 3 BID ORAL
     Route: 048
  3. REYATAZ [Concomitant]

REACTIONS (4)
  - CEREBRAL INFARCTION [None]
  - CONVULSION NEONATAL [None]
  - DRUG EXPOSURE DURING PREGNANCY [None]
  - NEONATAL DISORDER [None]
